FAERS Safety Report 22132473 (Version 1)
Quarter: 2023Q1

REPORT INFORMATION
  Report Type: Spontaneous
  Country: US (occurrence: US)
  Receive Date: 20230323
  Receipt Date: 20230323
  Transmission Date: 20230418
  Serious: No
  Sender: FDA-Public Use
  Company Number: US-ALLERGAN-2233630US

PATIENT
  Age: 58 Year
  Sex: Male

DRUGS (1)
  1. LINZESS [Suspect]
     Active Substance: LINACLOTIDE
     Indication: Product used for unknown indication
     Dosage: 75 ?G

REACTIONS (3)
  - Gastric disorder [Unknown]
  - Therapeutic product effect increased [Unknown]
  - Constipation [Unknown]
